FAERS Safety Report 5034719-9 (Version None)
Quarter: 2006Q2

REPORT INFORMATION
  Report Type: 
  Country: None (occurrence: None)
  Receive Date: 20060621
  Receipt Date: 20060531
  Transmission Date: 20061013
  Serious: Yes (Death, Hospitalization)
  Sender: FDA-Public Use
  Company Number: IT200602003146

PATIENT
  Age: 63 Year
  Sex: Female
  Weight: 54 kg

DRUGS (8)
  1. ALIMTA [Suspect]
     Indication: PLEURAL MESOTHELIOMA
     Dosage: 765 MG, 3/W, INTRAVENOUS; SEE IMAGE
     Route: 042
     Dates: start: 20050729, end: 20050919
  2. ALIMTA [Suspect]
     Indication: PLEURAL MESOTHELIOMA
     Dosage: 765 MG, 3/W, INTRAVENOUS; SEE IMAGE
     Route: 042
     Dates: start: 20051122, end: 20051122
  3. ALIMTA [Suspect]
     Indication: PLEURAL MESOTHELIOMA
     Dosage: 765 MG, 3/W, INTRAVENOUS; SEE IMAGE
     Route: 042
     Dates: start: 20051220, end: 20051220
  4. CISPLATIN [Concomitant]
  5. DELTACORTENE (PREDNISONE) [Concomitant]
  6. ONDANSETRON [Concomitant]
  7. LEUCOVORIN CALCIUM [Concomitant]
  8. CYANOCOBALAMIN [Concomitant]

REACTIONS (5)
  - CONFUSIONAL STATE [None]
  - DISORIENTATION [None]
  - MUCOSAL INFLAMMATION [None]
  - PANCYTOPENIA [None]
  - RENAL FAILURE [None]
